FAERS Safety Report 23069108 (Version 15)
Quarter: 2024Q2

REPORT INFORMATION
  Report Type: Spontaneous
  Country: CA (occurrence: CA)
  Receive Date: 20231016
  Receipt Date: 20240611
  Transmission Date: 20240716
  Serious: Yes (Death, Other)
  Sender: FDA-Public Use
  Company Number: CA-PFIZER INC-PV202300163097

PATIENT
  Age: 73 Year
  Sex: Male
  Weight: 75 kg

DRUGS (26)
  1. ZIRABEV [Suspect]
     Active Substance: BEVACIZUMAB-BVZR
     Indication: Biphasic mesothelioma
     Dosage: 15 MG/KG, EVERY 3 WEEKS, REPEATS: 12 WITH CHEMO FOR SIX CYCLES THEN MAINTENANCE AS LONG AS TOLERATED
     Route: 042
  2. ZIRABEV [Suspect]
     Active Substance: BEVACIZUMAB-BVZR
     Dosage: 1125 MG EVERY 3WEEKS
     Route: 042
     Dates: start: 20231102
  3. ZIRABEV [Suspect]
     Active Substance: BEVACIZUMAB-BVZR
     Dosage: 1125 MG
     Route: 042
     Dates: start: 20231123
  4. ZIRABEV [Suspect]
     Active Substance: BEVACIZUMAB-BVZR
     Dosage: 1125 MG
     Route: 042
     Dates: start: 20231214
  5. ZIRABEV [Suspect]
     Active Substance: BEVACIZUMAB-BVZR
     Dosage: 1125 MG
     Route: 042
     Dates: start: 20240104
  6. ZIRABEV [Suspect]
     Active Substance: BEVACIZUMAB-BVZR
     Dosage: 1125 MG
     Route: 042
     Dates: start: 20240104
  7. ZIRABEV [Suspect]
     Active Substance: BEVACIZUMAB-BVZR
     Dosage: 1125 MG
     Route: 042
     Dates: start: 20240125
  8. ZIRABEV [Suspect]
     Active Substance: BEVACIZUMAB-BVZR
     Dosage: 1125 MG
     Route: 042
     Dates: start: 20240215
  9. ZIRABEV [Suspect]
     Active Substance: BEVACIZUMAB-BVZR
     Dosage: 1125 MG
     Route: 042
     Dates: start: 20240307
  10. ZIRABEV [Suspect]
     Active Substance: BEVACIZUMAB-BVZR
     Dosage: 1125 MG
     Route: 042
     Dates: start: 20240328
  11. ZIRABEV [Suspect]
     Active Substance: BEVACIZUMAB-BVZR
     Dosage: 1125 MG
     Route: 042
     Dates: start: 20240418
  12. ZIRABEV [Suspect]
     Active Substance: BEVACIZUMAB-BVZR
     Dosage: 1125 MG
     Route: 042
     Dates: start: 20240509
  13. AMLODIPINE [Concomitant]
     Active Substance: AMLODIPINE BESYLATE
     Indication: Premedication
     Dosage: 5 MG
  14. AKYNZEO [FOSNETUPITANT CHLORIDE HYDROCHLORIDE;PALONOSETRON HYDROCHLORI [Concomitant]
     Indication: Premedication
     Dosage: UNK
  15. ATORVASTATIN [Concomitant]
     Active Substance: ATORVASTATIN
     Indication: Premedication
     Dosage: 10 MG
  16. CARBOPLATIN/PEMETREXED [Concomitant]
     Dosage: UNK
     Dates: start: 20231012
  17. CORTEF ACETATE [Concomitant]
     Active Substance: HYDROCORTISONE ACETATE
     Dosage: UNK
  18. DEXAMETHASONE [Concomitant]
     Active Substance: DEXAMETHASONE
     Indication: Premedication
     Dosage: 4 MG (WITH CHEMOTHERAPY)
  19. DORZOLAMIDE [Concomitant]
     Active Substance: DORZOLAMIDE
     Indication: Premedication
     Dosage: 1 DROP, 3X/DAY
  20. FOLIC ACID [Concomitant]
     Active Substance: FOLIC ACID
     Indication: Premedication
     Dosage: 1 MG
  21. HYDROCORTISONE [Concomitant]
     Active Substance: HYDROCORTISONE\HYDROCORTISONE ACETATE
     Indication: Premedication
     Dosage: 10 MG
  22. LEVOTHYROXINE [Concomitant]
     Active Substance: LEVOTHYROXINE\LEVOTHYROXINE SODIUM
     Indication: Premedication
     Dosage: 112.5 UG
  23. OLANZAPINE [Concomitant]
     Active Substance: OLANZAPINE
     Indication: Premedication
     Dosage: 25 MG
  24. TIMOLOL [Concomitant]
     Active Substance: TIMOLOL
     Indication: Premedication
     Dosage: 1 DROP EA EYE, DAILY (GTT)
     Route: 047
  25. VITAMIN B12 [Concomitant]
     Active Substance: CYANOCOBALAMIN
     Indication: Premedication
     Dosage: 1000 UG
  26. ZOPICLONE [Concomitant]
     Active Substance: ZOPICLONE
     Indication: Premedication
     Dosage: 5 MG

REACTIONS (8)
  - Death [Fatal]
  - Skin laceration [Unknown]
  - Hypertension [Not Recovered/Not Resolved]
  - Neoplasm progression [Unknown]
  - Dry eye [Unknown]
  - Eye pruritus [Unknown]
  - Asthenia [Unknown]
  - Off label use [Unknown]

NARRATIVE: CASE EVENT DATE: 20231214
